FAERS Safety Report 15306120 (Version 2)
Quarter: 2018Q4

REPORT INFORMATION
  Report Type: Spontaneous
  Country: US (occurrence: US)
  Receive Date: 20180822
  Receipt Date: 20181009
  Transmission Date: 20190204
  Serious: No
  Sender: FDA-Public Use
  Company Number: US-PFIZER INC-2018336986

PATIENT
  Age: 62 Year
  Sex: Male

DRUGS (2)
  1. LYRICA [Suspect]
     Active Substance: PREGABALIN
     Dosage: UNK
     Dates: start: 200701
  2. CELEBREX [Suspect]
     Active Substance: CELECOXIB
     Indication: ARTHRITIS
     Dosage: 200 MG, 1X/DAY
     Dates: start: 200601

REACTIONS (1)
  - Withdrawal syndrome [Recovered/Resolved]

NARRATIVE: CASE EVENT DATE: 20180630
